FAERS Safety Report 15972661 (Version 1)
Quarter: 2019Q1

REPORT INFORMATION
  Report Type: Spontaneous
  Country: GB (occurrence: GB)
  Receive Date: 20190216
  Receipt Date: 20190216
  Transmission Date: 20190418
  Serious: Yes (Hospitalization)
  Sender: FDA-Public Use
  Company Number: GB-ACCORD-107216

PATIENT
  Age: 78 Year

DRUGS (9)
  1. ISOSORBIDE. [Concomitant]
     Active Substance: ISOSORBIDE
  2. ATORVASTATIN [Concomitant]
     Active Substance: ATORVASTATIN
  3. APIXABAN [Concomitant]
     Active Substance: APIXABAN
  4. RANITIDINE. [Concomitant]
     Active Substance: RANITIDINE
  5. FUROSEMIDE. [Suspect]
     Active Substance: FUROSEMIDE
     Indication: PRODUCT USED FOR UNKNOWN INDICATION
  6. NICORANDIL [Concomitant]
     Active Substance: NICORANDIL
  7. AMIODARONE [Suspect]
     Active Substance: AMIODARONE
     Indication: PRODUCT USED FOR UNKNOWN INDICATION
  8. BISOPROLOL [Concomitant]
     Active Substance: BISOPROLOL
  9. LEVOTHYROXINE. [Concomitant]
     Active Substance: LEVOTHYROXINE

REACTIONS (8)
  - Dyspnoea [Unknown]
  - Pleural effusion [Unknown]
  - Liver function test abnormal [Not Recovered/Not Resolved]
  - Fatigue [Unknown]
  - Palpitations [Unknown]
  - Hypokalaemia [Recovered/Resolved]
  - Pallor [Unknown]
  - Hyponatraemia [Recovering/Resolving]
